FAERS Safety Report 7525967-4 (Version None)
Quarter: 2011Q2

REPORT INFORMATION
  Report Type: 
  Country: None (occurrence: None)
  Receive Date: 20110606
  Receipt Date: 20110526
  Transmission Date: 20111010
  Serious: Yes (Hospitalization)
  Sender: FDA-Public Use
  Company Number: JP-ASTRAZENECA-2011SE33513

PATIENT
  Age: 81 Year
  Sex: Female

DRUGS (12)
  1. RHYTHMY [Concomitant]
     Route: 048
  2. DOGMATYL [Concomitant]
     Route: 048
  3. CLARITHROMYCIN [Concomitant]
     Route: 048
  4. NIVADIL [Concomitant]
     Route: 048
  5. PREDNISOLONE [Concomitant]
     Route: 048
  6. CANDESARTAN CILEXETIL [Suspect]
     Indication: HYPERTENSION
     Route: 048
     Dates: start: 20081009, end: 20110218
  7. LUDIOMIL [Concomitant]
     Route: 048
  8. GASMOTIN [Concomitant]
     Route: 048
  9. ALFAROL [Concomitant]
     Route: 048
  10. LANSOPRAZOLE [Concomitant]
     Route: 048
  11. PURSENNID [Concomitant]
     Route: 048
  12. BUFFERIN [Concomitant]
     Route: 048

REACTIONS (4)
  - URINARY TRACT INFECTION [None]
  - RHABDOMYOLYSIS [None]
  - SUBDURAL HAEMATOMA [None]
  - FALL [None]
